FAERS Safety Report 15313530 (Version 2)
Quarter: 2018Q3

REPORT INFORMATION
  Report Type: Spontaneous
  Country: JP (occurrence: JP)
  Receive Date: 20180824
  Receipt Date: 20180924
  Transmission Date: 20181010
  Serious: Yes (Hospitalization, Other)
  Sender: FDA-Public Use
  Company Number: JP-BRISTOL-MYERS SQUIBB COMPANY-BMS-2018-078307

PATIENT
  Age: 66 Year
  Sex: Male

DRUGS (2)
  1. BUFFERIN [Suspect]
     Active Substance: ASPIRIN
     Indication: BACK PAIN
     Route: 065
  2. ELIQUIS [Suspect]
     Active Substance: APIXABAN
     Indication: CEREBROVASCULAR ACCIDENT PROPHYLAXIS
     Dosage: 5 MG, DAILY
     Route: 065

REACTIONS (1)
  - Tumour haemorrhage [Recovering/Resolving]
